FAERS Safety Report 5155081-7 (Version None)
Quarter: 2006Q4

REPORT INFORMATION
  Report Type: 
  Country: None (occurrence: None)
  Receive Date: 20061121
  Receipt Date: 20061011
  Transmission Date: 20070319
  Serious: Yes (Other)
  Sender: FDA-Public Use
  Company Number: NL-GLAXOSMITHKLINE-B0442007A

PATIENT
  Age: 52 Year
  Sex: Female

DRUGS (2)
  1. ALBUTEROL SPIROS [Suspect]
     Indication: DRUG USE FOR UNKNOWN INDICATION
     Route: 055
  2. ALBUTEROL SPIROS [Concomitant]
     Route: 055

REACTIONS (2)
  - DRUG INEFFECTIVE [None]
  - PNEUMONIA [None]
